FAERS Safety Report 21101232 (Version 1)
Quarter: 2022Q3

REPORT INFORMATION
  Report Type: Spontaneous
  Country: US (occurrence: US)
  Receive Date: 20220719
  Receipt Date: 20220719
  Transmission Date: 20221027
  Serious: Yes (Other)
  Sender: FDA-Public Use
  Company Number: US-SA-SAC00000000073690

PATIENT
  Age: 69 Year
  Sex: Female

DRUGS (1)
  1. ZANTAC [Suspect]
     Active Substance: RANITIDINE HYDROCHLORIDE
     Dosage: OTHER
     Dates: start: 198001, end: 199901

REACTIONS (2)
  - Lung carcinoma cell type unspecified stage I [Unknown]
  - Pancreatic carcinoma stage I [Unknown]

NARRATIVE: CASE EVENT DATE: 20200101
